FAERS Safety Report 6810804-3 (Version None)
Quarter: 2010Q2

REPORT INFORMATION
  Report Type: 
  Country: None (occurrence: None)
  Receive Date: 20100630
  Receipt Date: 20080331
  Transmission Date: 20101027
  Serious: No
  Sender: FDA-Public Use
  Company Number: US-PFIZER INC-2008020717

PATIENT
  Sex: Male
  Weight: 185 kg

DRUGS (1)
  1. NICOTROL [Suspect]
     Indication: SMOKING CESSATION THERAPY
     Dates: end: 20080201

REACTIONS (4)
  - COUGH [None]
  - DYSPHAGIA [None]
  - HYPERSENSITIVITY [None]
  - THROAT IRRITATION [None]
